FAERS Safety Report 10024779 (Version 2)
Quarter: 2014Q2

REPORT INFORMATION
  Report Type: Spontaneous
  Country: US (occurrence: US)
  Receive Date: 20140320
  Receipt Date: 20140513
  Transmission Date: 20141212
  Serious: Yes (Death, Hospitalization)
  Sender: FDA-Public Use
  Company Number: US-BAYER-2014-039987

PATIENT
  Age: 69 Year
  Sex: Male
  Weight: 97 kg

DRUGS (3)
  1. XOFIGO [Suspect]
     Indication: HORMONE-REFRACTORY PROSTATE CANCER
     Dosage: TOTAL DAILY DOSE: 50 KBQ/KG; DOSE REGIMEN: EVERY 4 WEEKS; ROUTE: INJECTION
     Dates: start: 20131219, end: 20131219
  2. XOFIGO [Suspect]
     Indication: METASTASES TO BONE
     Dosage: TOTAL DAILY DOSE: 50 KBQ/KG; DOSE REGIMEN: EVERY 4 WEEKS; ROUTE: INJECTION
     Dates: start: 20140117, end: 20140117
  3. XOFIGO [Suspect]
     Indication: HORMONE-REFRACTORY PROSTATE CANCER
     Dosage: TOTAL DAILY DOSE: 50 KBQ/KG; DOSE REGIMEN: EVERY 4 WEEKS; ROUTE: INJECTION
     Dates: start: 20140214, end: 20140214

REACTIONS (2)
  - Hospitalisation [None]
  - Acidosis [Fatal]
